FAERS Safety Report 15281874 (Version 1)
Quarter: 2018Q3

REPORT INFORMATION
  Report Type: Spontaneous
  Country: US (occurrence: US)
  Receive Date: 20180731
  Receipt Date: 20180731
  Transmission Date: 20181010
  Serious: No
  Sender: FDA-Public Use
  Company Number: None

PATIENT
  Age: 58 Year
  Sex: Female
  Weight: 54.9 kg

DRUGS (8)
  1. XIIDRA [Suspect]
     Active Substance: LIFITEGRAST
     Indication: DRY EYE
     Dosage: ?          QUANTITY:1 DROP(S);?
     Route: 047
     Dates: start: 20180717, end: 20180729
  2. MULTIVITAMIN WITH IRON [Concomitant]
     Active Substance: IRON\VITAMINS
  3. OMEPRAZOLE. [Concomitant]
     Active Substance: OMEPRAZOLE
  4. PROBIOTIC [Concomitant]
     Active Substance: PROBIOTICS NOS
  5. CORAL CALCIUM [Concomitant]
     Active Substance: DIETARY SUPPLEMENT
  6. CALCIUM CARBONATE. [Concomitant]
     Active Substance: CALCIUM CARBONATE
  7. GLUCOSAMINE/CHONDROITIN [Concomitant]
  8. VITAMIN D3 [Concomitant]
     Active Substance: CHOLECALCIFEROL

REACTIONS (1)
  - Headache [None]

NARRATIVE: CASE EVENT DATE: 20180717
